FAERS Safety Report 12722105 (Version 2)
Quarter: 2016Q4

REPORT INFORMATION
  Report Type: Spontaneous
  Country: US (occurrence: US)
  Receive Date: 20160907
  Receipt Date: 20161208
  Transmission Date: 20170207
  Serious: Yes (Other)
  Sender: FDA-Public Use
  Company Number: US-BAYER-2016-171794

PATIENT
  Age: 56 Year
  Sex: Female
  Weight: 92.06 kg

DRUGS (25)
  1. AVELOX [Suspect]
     Active Substance: MOXIFLOXACIN HYDROCHLORIDE
     Dosage: 400 MG, UNK
     Dates: start: 20111223
  2. ALPRAZOLAM. [Concomitant]
     Active Substance: ALPRAZOLAM
     Dosage: 1 MG, UNK
  3. ESTRADIOL. [Concomitant]
     Active Substance: ESTRADIOL
     Dosage: 0.1 MG, UNK
  4. PREVIDENT 5000 PLUS [Concomitant]
  5. FLAGYL [Concomitant]
     Active Substance: METRONIDAZOLE\METRONIDAZOLE HYDROCHLORIDE
  6. MILK THISTLE [Concomitant]
     Active Substance: MILK THISTLE
     Dosage: 175 MG, UNK
  7. RED YEAST RICE [Concomitant]
     Active Substance: DIETARY SUPPLEMENT
     Dosage: 600 MG, UNK
  8. THALIDOMIDE [Concomitant]
     Active Substance: THALIDOMIDE
  9. ESOMEPRAZOLE [Concomitant]
     Active Substance: ESOMEPRAZOLE
     Dosage: 40 MG, UNK
  10. AVELOX [Suspect]
     Active Substance: MOXIFLOXACIN HYDROCHLORIDE
     Dosage: 400 MG, UNK
     Dates: start: 201101
  11. CIPROFLOXACIN. [Suspect]
     Active Substance: CIPROFLOXACIN
     Dosage: 500 MG, UNK
     Dates: start: 20131027, end: 20140627
  12. METOPROLOL SUCCINATE. [Concomitant]
     Active Substance: METOPROLOL SUCCINATE
     Route: 048
  13. ANTIDEPRESSANTS [Concomitant]
     Active Substance: UNSPECIFIED INGREDIENT
  14. FLUOXETINE [Concomitant]
     Active Substance: FLUOXETINE HYDROCHLORIDE
     Dosage: 20 MG, UNK
  15. ASPIRIN. [Concomitant]
     Active Substance: ASPIRIN
     Dosage: 81 MG, UNK
  16. HYDROCORTISONE. [Concomitant]
     Active Substance: HYDROCORTISONE
     Dosage: UNK
  17. IBUPROFEN. [Concomitant]
     Active Substance: IBUPROFEN
     Dosage: 200 MG, UNK
  18. MULTIVITAMIN [Concomitant]
     Active Substance: VITAMINS
  19. NITROFURANTOIN. [Concomitant]
     Active Substance: NITROFURANTOIN
  20. AMOXICILLIN. [Concomitant]
     Active Substance: AMOXICILLIN
  21. AMPICILLIN [Concomitant]
     Active Substance: AMPICILLIN
  22. COENZYME Q10 [Concomitant]
     Active Substance: UBIDECARENONE
     Dosage: 100 MG, UNK
  23. LOSARTAN POTASSIUM W/HYDROCHLOROTHIAZIDE [Concomitant]
     Active Substance: HYDROCHLOROTHIAZIDE\LOSARTAN POTASSIUM
     Dosage: 50-12.5 MG PER TABLET
  24. BETA-LACTAMASE SENSITIVE PENICILLINS [Concomitant]
  25. DEXTROAMPHET SACCHARAT, AMPHET ASPARTATE, DEXTROAMPHET SULFATE AND AMPHET SULFAT [Concomitant]
     Active Substance: AMPHETAMINE ASPARTATE\AMPHETAMINE SULFATE\DEXTROAMPHETAMINE SACCHARATE\DEXTROAMPHETAMINE SULFATE

REACTIONS (17)
  - Burning sensation [None]
  - Paraesthesia [None]
  - Balance disorder [None]
  - Hypoaesthesia [None]
  - Asthenia [None]
  - Back pain [None]
  - Vulvovaginal pain [None]
  - Fatigue [None]
  - Neuropathy peripheral [None]
  - Pain [None]
  - Discomfort [None]
  - Nephrolithiasis [None]
  - Visual impairment [None]
  - Pelvic pain [None]
  - Headache [None]
  - Gastrointestinal stromal tumour [None]
  - Weight increased [None]
